FAERS Safety Report 26009244 (Version 1)
Quarter: 2025Q4

REPORT INFORMATION
  Report Type: Report from Study
  Country: RU (occurrence: RU)
  Receive Date: 20251107
  Receipt Date: 20251107
  Transmission Date: 20260117
  Serious: Yes (Other)
  Sender: NOVARTIS
  Company Number: RU-002147023-NVSC2023RU168356

PATIENT
  Age: 45 Year
  Sex: Female

DRUGS (3)
  1. KISQALI [Suspect]
     Active Substance: RIBOCICLIB SUCCINATE
     Indication: Breast cancer
     Dosage: 600 MG
     Route: 048
     Dates: start: 20221021, end: 20221223
  2. KISQALI [Suspect]
     Active Substance: RIBOCICLIB SUCCINATE
     Dosage: 400 MG
     Route: 048
     Dates: start: 20221224, end: 20230809
  3. KISQALI [Suspect]
     Active Substance: RIBOCICLIB SUCCINATE
     Dosage: 200 MG
     Route: 048
     Dates: start: 20230810, end: 20231220

REACTIONS (2)
  - Haematotoxicity [Recovering/Resolving]
  - Skin toxicity [Recovering/Resolving]

NARRATIVE: CASE EVENT DATE: 20221223
